FAERS Safety Report 5730261-8 (Version None)
Quarter: 2008Q2

REPORT INFORMATION
  Report Type: 
  Country: None (occurrence: None)
  Receive Date: 20080502
  Receipt Date: 20080407
  Transmission Date: 20081010
  Serious: Yes (Life-Threatening, Hospitalization)
  Sender: FDA-Public Use
  Company Number: 100#08#2008-01937

PATIENT
  Age: 38 Year
  Sex: Female

DRUGS (2)
  1. TEGRETOL [Suspect]
     Indication: BIPOLAR DISORDER
     Dosage: 7.7 G; 700 MG
  2. LIMAS (TABLETS) (LITHIUM) [Suspect]
     Indication: BIPOLAR DISORDER
     Dosage: 6.6 G; 600 MG

REACTIONS (2)
  - COMA [None]
  - OVERDOSE [None]
